FAERS Safety Report 4532287-9 (Version None)
Quarter: 2004Q4

REPORT INFORMATION
  Report Type: 
  Country: None (occurrence: None)
  Receive Date: 20041217
  Receipt Date: 20041202
  Transmission Date: 20050328
  Serious: Yes (Hospitalization)
  Sender: FDA-Public Use
  Company Number: 2004BI000798

PATIENT
  Age: 60 Year
  Sex: Female

DRUGS (2)
  1. AVONEX [Suspect]
     Indication: MULTIPLE SCLEROSIS
     Dosage: 30 UG; Q5D; IM
     Route: 030
     Dates: start: 19980901, end: 20030904
  2. AVONEX [Suspect]
     Indication: MULTIPLE SCLEROSIS
     Dosage: 30 UG; Q5D; IM
     Route: 030
     Dates: start: 20030901

REACTIONS (3)
  - ASTHENIA [None]
  - FALL [None]
  - INTESTINAL OBSTRUCTION [None]
